FAERS Safety Report 4624775-1 (Version None)
Quarter: 2005Q1

REPORT INFORMATION
  Report Type: 
  Country: None (occurrence: None)
  Receive Date: 20050107
  Receipt Date: 20041002
  Transmission Date: 20050727
  Serious: No
  Sender: FDA-Public Use
  Company Number: 230201M04USA

PATIENT
  Age: 54 Year
  Sex: Female

DRUGS (1)
  1. REBIF [Suspect]
     Indication: MULTIPLE SCLEROSIS
     Dosage: 44 MCG
     Dates: start: 20040929, end: 20041001

REACTIONS (4)
  - COORDINATION ABNORMAL [None]
  - DYSARTHRIA [None]
  - DYSSTASIA [None]
  - SPEECH DISORDER [None]
